FAERS Safety Report 12799593 (Version 6)
Quarter: 2017Q2

REPORT INFORMATION
  Report Type: Report from Study
  Country: GB (occurrence: GB)
  Receive Date: 20160930
  Receipt Date: 20170426
  Transmission Date: 20170830
  Serious: Yes (Other)
  Sender: FDA-Public Use
  Company Number: GB-BRISTOL-MYERS SQUIBB COMPANY-BMS-2016-080096

PATIENT
  Sex: Female

DRUGS (1)
  1. ABATACEPT [Suspect]
     Active Substance: ABATACEPT
     Indication: RHEUMATOID ARTHRITIS
     Dosage: 125 MG, QWK
     Route: 058
     Dates: start: 20160916

REACTIONS (6)
  - Influenza [Unknown]
  - Dysstasia [Unknown]
  - Hypoaesthesia [Unknown]
  - Product quality issue [Unknown]
  - Neuralgia [Unknown]
  - Incorrect dose administered [Unknown]
